FAERS Safety Report 15151203 (Version 2)
Quarter: 2018Q4

REPORT INFORMATION
  Report Type: Spontaneous
  Country: US (occurrence: US)
  Receive Date: 20180716
  Receipt Date: 20181030
  Transmission Date: 20190204
  Serious: Yes (Other)
  Sender: FDA-Public Use
  Company Number: US-SA-2018SA190412

PATIENT
  Age: 61 Year
  Sex: Female
  Weight: 60 kg

DRUGS (17)
  1. ZOFRAN [ONDANSETRON] [Concomitant]
  2. ANZEMET [Concomitant]
     Active Substance: DOLASETRON MESYLATE
  3. NEOSAR [Concomitant]
     Active Substance: CYCLOPHOSPHAMIDE
  4. CYTOXAN [Concomitant]
     Active Substance: CYCLOPHOSPHAMIDE
  5. NEULASTA [Concomitant]
     Active Substance: PEGFILGRASTIM
  6. LYRICA [Concomitant]
     Active Substance: PREGABALIN
  7. TRIAMTERENE. [Concomitant]
     Active Substance: TRIAMTERENE
  8. TAXOTERE [Suspect]
     Active Substance: DOCETAXEL
     Indication: BREAST CANCER FEMALE
     Dosage: 160 MG, Q3W
     Route: 042
     Dates: start: 20070323, end: 20070323
  9. TAXOTERE [Suspect]
     Active Substance: DOCETAXEL
     Dosage: 160 MG, Q3W
     Route: 042
     Dates: start: 20070529, end: 20070529
  10. NEUPOGEN [Concomitant]
     Active Substance: FILGRASTIM
  11. LEVOTHYROXIN [Concomitant]
     Active Substance: LEVOTHYROXINE
  12. ALOXI [Concomitant]
     Active Substance: PALONOSETRON HYDROCHLORIDE
  13. PROCRIT [Concomitant]
     Active Substance: ERYTHROPOIETIN
  14. PREVACID [Concomitant]
     Active Substance: LANSOPRAZOLE
  15. EMEND [APREPITANT] [Concomitant]
  16. ADRIAMYCIN [Concomitant]
     Active Substance: DOXORUBICIN HYDROCHLORIDE
  17. DECADRON [DEXAMETHASONE] [Concomitant]

REACTIONS (1)
  - Alopecia [Not Recovered/Not Resolved]

NARRATIVE: CASE EVENT DATE: 20071101
